FAERS Safety Report 20426784 (Version 3)
Quarter: 2022Q2

REPORT INFORMATION
  Report Type: Report from Study
  Country: US (occurrence: US)
  Receive Date: 20220204
  Receipt Date: 20220407
  Transmission Date: 20220721
  Serious: Yes (Hospitalization, Other)
  Sender: FDA-Public Use
  Company Number: US-ACADIA PHARMACEUTICALS INC.-ACA-2022-PIM-000308

PATIENT
  Age: 70 Year
  Sex: Female

DRUGS (3)
  1. NUPLAZID [Suspect]
     Active Substance: PIMAVANSERIN TARTRATE
     Indication: Parkinson^s disease
     Dosage: 34 MILLIGRAM, QD (AT NIGHT)
     Route: 048
     Dates: start: 2018
  2. NUPLAZID [Suspect]
     Active Substance: PIMAVANSERIN TARTRATE
     Dosage: 34 MILLIGRAM, QD
     Route: 048
     Dates: start: 202112
  3. NUPLAZID [Suspect]
     Active Substance: PIMAVANSERIN TARTRATE
     Dosage: 34 MILLIGRAM, QD
     Route: 048

REACTIONS (9)
  - Pneumonia [Unknown]
  - Urinary tract infection [Unknown]
  - Crying [Unknown]
  - Dysarthria [Unknown]
  - Screaming [Unknown]
  - Confusional state [Unknown]
  - Hallucination [Unknown]
  - Catatonia [Unknown]
  - Hallucination [Unknown]

NARRATIVE: CASE EVENT DATE: 20211201
